FAERS Safety Report 22289015 (Version 1)
Quarter: 2023Q2

REPORT INFORMATION
  Report Type: Spontaneous
  Country: DE (occurrence: DE)
  Receive Date: 20230505
  Receipt Date: 20230505
  Transmission Date: 20230721
  Serious: Yes (Congenital Anomaly)
  Sender: FDA-Public Use
  Company Number: DE-EMBRYOTOX-202117754

PATIENT
  Age: 1 Day
  Sex: Female
  Weight: 3.94 kg

DRUGS (6)
  1. SUMATRIPTAN [Suspect]
     Active Substance: SUMATRIPTAN
     Indication: Product used for unknown indication
     Dosage: 100 [MG/D ]/ GW 2+6, 5+0, 6+5, 7+6, 9+3, 10+6, 11+1, 12+5, 13+1, 13+5, 13+6, 14+2, 14+3, 16+1, 16+2
     Route: 064
     Dates: start: 20210801, end: 20220104
  2. IBUPROFEN [Concomitant]
     Active Substance: IBUPROFEN
     Indication: Product used for unknown indication
     Route: 064
     Dates: start: 20211021, end: 20211021
  3. EUTHYROX [Concomitant]
     Active Substance: LEVOTHYROXINE SODIUM
     Indication: Product used for unknown indication
     Dosage: 150 [?G/D ]/ BECAUSE OF GRAVES^ DISEASE; 150 ?G/D IN THE BEGINNING, INCREASED  TO 225 ?G/D AT THE EN
     Route: 064
     Dates: start: 20210712
  4. EUTHYROX [Concomitant]
     Active Substance: LEVOTHYROXINE SODIUM
     Route: 064
     Dates: end: 20220421
  5. COMIRNATY MONOVALENT [Concomitant]
     Indication: Product used for unknown indication
     Route: 064
     Dates: start: 20211206, end: 20211206
  6. VITAMIN D [Concomitant]
     Active Substance: VITAMIN D NOS
     Indication: Product used for unknown indication
     Dosage: 1000 [I.E./D (GELGENTLICH) ]/ OCCASIONALLY, UNKNOWN UNTIL WHEN
     Route: 064

REACTIONS (3)
  - Atrial septal defect [Recovered/Resolved]
  - Ventricular septal defect [Recovered/Resolved]
  - Foetal exposure during pregnancy [Unknown]

NARRATIVE: CASE EVENT DATE: 20220401
